FAERS Safety Report 21449547 (Version 3)
Quarter: 2022Q4

REPORT INFORMATION
  Report Type: Report from Study
  Country: US (occurrence: US)
  Receive Date: 20221013
  Receipt Date: 20221223
  Transmission Date: 20230113
  Serious: No
  Sender: FDA-Public Use
  Company Number: US-ABBVIE-4141712

PATIENT
  Sex: Male

DRUGS (4)
  1. HUMIRA [Suspect]
     Active Substance: ADALIMUMAB
     Indication: Ankylosing spondylitis
     Route: 058
  2. HUMIRA [Suspect]
     Active Substance: ADALIMUMAB
     Route: 058
  3. HUMIRA [Suspect]
     Active Substance: ADALIMUMAB
     Dosage: ONSET DATES FOR EVENTS WERE LOW ENERGY, COVID-19, DEHYDRATED CLEARED THROAT SEVERAL TIMES/MOUTH W...
     Route: 058
     Dates: start: 20220502
  4. PFIZER-BIONTECH COVID-19 VACCINE [Suspect]
     Active Substance: TOZINAMERAN
     Indication: COVID-19 immunisation
     Dosage: ONE IN ONCE?ONSET DATE FOR EVENT LOW ENERGY WAS 2022
     Route: 030
     Dates: start: 20220923, end: 20220923

REACTIONS (7)
  - Memory impairment [Unknown]
  - Asthenia [Unknown]
  - Dehydration [Unknown]
  - COVID-19 [Unknown]
  - Stress [Unknown]
  - Dry mouth [Unknown]
  - Throat clearing [Unknown]
